FAERS Safety Report 5531416-8 (Version None)
Quarter: 2007Q4

REPORT INFORMATION
  Report Type: 
  Country: None (occurrence: None)
  Receive Date: 20071203
  Receipt Date: 20071127
  Transmission Date: 20080405
  Serious: Yes (Disabling)
  Sender: FDA-Public Use
  Company Number: JP-BRISTOL-MYERS SQUIBB COMPANY-13999776

PATIENT
  Age: 66 Year
  Sex: Male

DRUGS (5)
  1. TAXOL [Suspect]
     Indication: GASTRIC CANCER
     Dosage: THERPAY DATES: CYCLE 7 ON 25-OCT-2007 AND CYCLE 8 ON 01-NOV-2007.
     Route: 041
     Dates: start: 20070830, end: 20071101
  2. OMEPRAL [Concomitant]
     Route: 048
     Dates: start: 20070820
  3. GASMOTIN [Concomitant]
     Route: 048
     Dates: start: 20070903
  4. ZYLORIC [Concomitant]
     Route: 048
     Dates: start: 20070910
  5. NAUZELIN [Concomitant]
     Route: 048
     Dates: start: 20070903

REACTIONS (2)
  - ARTHRALGIA [None]
  - MUSCULOSKELETAL STIFFNESS [None]
